FAERS Safety Report 6278912-6 (Version None)
Quarter: 2009Q3

REPORT INFORMATION
  Report Type: 
  Country: None (occurrence: None)
  Receive Date: 20090723
  Receipt Date: 20090714
  Transmission Date: 20100115
  Serious: Yes (Hospitalization)
  Sender: FDA-Public Use
  Company Number: GB-RANBAXY-2009RR-25672

PATIENT
  Age: 6 Year
  Sex: Male

DRUGS (1)
  1. PARACETAMOL [Suspect]
     Indication: ACCIDENTAL OVERDOSE
     Dosage: 2400 MG, UNK
     Route: 048
     Dates: start: 20090615, end: 20090615

REACTIONS (5)
  - ABDOMINAL PAIN UPPER [None]
  - ACCIDENTAL OVERDOSE [None]
  - FATIGUE [None]
  - HEADACHE [None]
  - NIGHTMARE [None]
